FAERS Safety Report 5753354-8 (Version None)
Quarter: 2008Q2

REPORT INFORMATION
  Report Type: 
  Country: None (occurrence: None)
  Receive Date: 20080530
  Receipt Date: 20080529
  Transmission Date: 20081010
  Serious: Yes (Life-Threatening)
  Sender: FDA-Public Use
  Company Number: IT-BRISTOL-MYERS SQUIBB COMPANY-14189245

PATIENT
  Age: 61 Year
  Sex: Male

DRUGS (2)
  1. TAXOL [Suspect]
     Indication: LUNG CANCER METASTATIC
     Dosage: TAXOL 175MG/M2.
     Route: 042
     Dates: start: 20080407, end: 20080428
  2. CARBOPLATIN [Concomitant]
     Route: 042

REACTIONS (5)
  - ACUTE MYOCARDIAL INFARCTION [None]
  - CARDIAC ARREST [None]
  - CORONARY ARTERY OCCLUSION [None]
  - CYANOSIS [None]
  - DYSPNOEA [None]
